FAERS Safety Report 10796643 (Version 2)
Quarter: 2015Q2

REPORT INFORMATION
  Report Type: Spontaneous
  Country: US (occurrence: US)
  Receive Date: 20150216
  Receipt Date: 20150406
  Transmission Date: 20150821
  Serious: No
  Sender: FDA-Public Use
  Company Number: US-ASTRAZENECA-2015SE14219

PATIENT
  Age: 51 Year
  Sex: Female
  Weight: 68 kg

DRUGS (4)
  1. PROZAC [Concomitant]
     Active Substance: FLUOXETINE HYDROCHLORIDE
  2. BUSPIRONE [Concomitant]
     Active Substance: BUSPIRONE HYDROCHLORIDE
  3. NEXIUM 24HR [Suspect]
     Active Substance: ESOMEPRAZOLE MAGNESIUM
     Indication: DYSPEPSIA
     Dosage: 1 DF, CYCLIC (TAKE FOR 14 DAYS STOP FOR ONE MONTH AND START AGAIN)
     Route: 048
     Dates: start: 201502
  4. NEXIUM 24HR [Suspect]
     Active Substance: ESOMEPRAZOLE MAGNESIUM
     Indication: DYSPEPSIA
     Dosage: 1 DF, CYCLIC (TAKE FOR 14 DAYS STOP FOR ONE MONTH AND START AGAIN)
     Route: 048
     Dates: start: 20140107, end: 20150104

REACTIONS (3)
  - Off label use [Unknown]
  - Insomnia [Unknown]
  - Product packaging quantity issue [Unknown]
